FAERS Safety Report 24877635 (Version 1)
Quarter: 2025Q1

REPORT INFORMATION
  Report Type: Spontaneous
  Country: DK (occurrence: DK)
  Receive Date: 20250123
  Receipt Date: 20250123
  Transmission Date: 20250409
  Serious: No
  Sender: ASTELLAS
  Company Number: DK-ASTELLAS-2025-AER-003649

PATIENT
  Sex: Male

DRUGS (1)
  1. VEOZAH [Suspect]
     Active Substance: FEZOLINETANT
     Indication: Product used for unknown indication
     Route: 050

REACTIONS (3)
  - Product use issue [Unknown]
  - Off label use [Unknown]
  - Therapeutic response unexpected [Unknown]
